FAERS Safety Report 13729246 (Version 1)
Quarter: 2017Q3

REPORT INFORMATION
  Report Type: Spontaneous
  Country: FR (occurrence: FR)
  Receive Date: 20170707
  Receipt Date: 20170707
  Transmission Date: 20171127
  Serious: Yes (Other)
  Sender: FDA-Public Use
  Company Number: FR-BAYER-2017-128027

PATIENT
  Age: 40 Year
  Sex: Female

DRUGS (2)
  1. MIRENA [Suspect]
     Active Substance: LEVONORGESTREL
     Indication: CONTRACEPTION
     Dosage: 20 MCG/24HR, CONT
     Route: 014
     Dates: start: 200705
  2. MIRENA [Suspect]
     Active Substance: LEVONORGESTREL
     Indication: CONTRACEPTION
     Dosage: 20 MCG/24HR, CONT
     Route: 015
     Dates: start: 2012, end: 20170512

REACTIONS (9)
  - Vision blurred [Unknown]
  - Weight increased [Unknown]
  - Anxiety [Unknown]
  - Speech disorder [Unknown]
  - Migraine [Unknown]
  - Abdominal distension [Unknown]
  - Loss of libido [Unknown]
  - Depression [Unknown]
  - Vertigo [Unknown]

NARRATIVE: CASE EVENT DATE: 200709
